FAERS Safety Report 25892293 (Version 1)
Quarter: 2025Q4

REPORT INFORMATION
  Report Type: Spontaneous
  Country: US (occurrence: US)
  Receive Date: 20251007
  Receipt Date: 20251007
  Transmission Date: 20260118
  Serious: Yes (Other)
  Sender: ROCHE
  Company Number: US-BoehringerIngelheim-2025-BI-097458

PATIENT
  Age: 28 Year
  Sex: Male

DRUGS (2)
  1. ALTEPLASE [Suspect]
     Active Substance: ALTEPLASE
     Indication: Product used for unknown indication
     Dosage: 8.2 MG IV BOLUS OF ALTEPLASE
     Route: 042
  2. ALTEPLASE [Suspect]
     Active Substance: ALTEPLASE
     Dosage: FOLLOWED BY A 74 MG ALTEPLASE INFUSION
     Route: 042

REACTIONS (4)
  - Vitreous haemorrhage [Not Recovered/Not Resolved]
  - Retinal aneurysm [Unknown]
  - Retinal haemorrhage [Unknown]
  - Visual impairment [Not Recovered/Not Resolved]
